FAERS Safety Report 8002671-X (Version None)
Quarter: 2011Q4

REPORT INFORMATION
  Report Type: 
  Country: None (occurrence: None)
  Receive Date: 20111222
  Receipt Date: 20111215
  Transmission Date: 20120403
  Serious: Yes (Other)
  Sender: FDA-Public Use
  Company Number: JP-NOVOPROD-340183

PATIENT

DRUGS (12)
  1. LANSOPRAZOLE [Concomitant]
     Indication: ACUTE MYOCARDIAL INFARCTION
     Dosage: 15 MG, QD
     Route: 048
  2. SULFAMETHOXAZOLE AND TRIMETHOPRIM [Concomitant]
     Indication: ACQUIRED HAEMOPHILIA
     Dosage: 35 MG, QW
     Route: 048
  3. NOVOSEVEN [Suspect]
     Indication: ACQUIRED HAEMOPHILIA
     Dosage: 8 MG, QD (1MG X 8 TIMES, EVERY 3 HOURS)
     Route: 042
     Dates: start: 20111117, end: 20111118
  4. PREDNISOLONE [Concomitant]
     Indication: ACQUIRED HAEMOPHILIA
     Dosage: 10 MG, QD
     Route: 042
     Dates: start: 20110516
  5. FUROSEMIDE [Concomitant]
     Indication: ACUTE MYOCARDIAL INFARCTION
  6. ADONA                              /00056903/ [Concomitant]
     Indication: MELAENA
     Dosage: UNK
     Dates: start: 20111116, end: 20111117
  7. RIKAVARIN [Concomitant]
     Indication: MELAENA
     Dosage: UNK
     Dates: start: 20111116, end: 20111117
  8. DIFLUCAN [Concomitant]
     Indication: ACQUIRED HAEMOPHILIA
     Dosage: 100 MG, QD
     Route: 048
  9. ALENDRONATE SODIUM [Concomitant]
     Indication: ACQUIRED HAEMOPHILIA
     Dosage: UNK
  10. NICORANTA [Concomitant]
     Indication: ACUTE MYOCARDIAL INFARCTION
     Dosage: 15 MG, QD
     Route: 048
  11. AISLAR [Concomitant]
     Indication: ACUTE MYOCARDIAL INFARCTION
     Dosage: 60 MG, QD
     Route: 048
  12. MAINHEART [Concomitant]
     Indication: ACUTE MYOCARDIAL INFARCTION
     Dosage: 2.5 MG, QD
     Route: 048

REACTIONS (2)
  - BONE PAIN [None]
  - CEREBRAL INFARCTION [None]
